FAERS Safety Report 18956262 (Version 1)
Quarter: 2021Q1

REPORT INFORMATION
  Report Type: Spontaneous
  Country: US (occurrence: US)
  Receive Date: 20210302
  Receipt Date: 20210302
  Transmission Date: 20210420
  Serious: Yes (Death, Life-Threatening, Hospitalization, Other)
  Sender: FDA-Public Use
  Company Number: US-DRREDDYS-USA/USA/21/0132446

PATIENT
  Age: 42 Year
  Sex: Male

DRUGS (1)
  1. ALLOPURINOL 300 MG [Suspect]
     Active Substance: ALLOPURINOL
     Indication: GOUT
     Dates: start: 201606

REACTIONS (6)
  - Hepatic enzyme increased [Fatal]
  - Drug reaction with eosinophilia and systemic symptoms [Fatal]
  - Toxic epidermal necrolysis [Fatal]
  - Septic shock [Fatal]
  - Supraventricular tachycardia [Fatal]
  - Type IV hypersensitivity reaction [Fatal]

NARRATIVE: CASE EVENT DATE: 201608
